FAERS Safety Report 13351963 (Version 1)
Quarter: 2017Q1

REPORT INFORMATION
  Report Type: Spontaneous
  Country: US (occurrence: US)
  Receive Date: 20170320
  Receipt Date: 20170320
  Transmission Date: 20170429
  Serious: No
  Sender: FDA-Public Use
  Company Number: US-SA-2016SA039152

PATIENT
  Age: 3 Year
  Sex: Female

DRUGS (1)
  1. NASACORT ALLERGY 24HR [Suspect]
     Active Substance: TRIAMCINOLONE ACETONIDE
     Indication: ALLERGY TO ANIMAL
     Dosage: TAKEN FROM 1 MONTH AGO TO LAST WEEK.
     Route: 045

REACTIONS (1)
  - Epistaxis [Unknown]
